FAERS Safety Report 7308461-5 (Version None)
Quarter: 2011Q1

REPORT INFORMATION
  Report Type: 
  Country: None (occurrence: None)
  Receive Date: 20110223
  Receipt Date: 20110216
  Transmission Date: 20110831
  Serious: No
  Sender: FDA-Public Use
  Company Number: US-BIOGENIDEC-2011BI006189

PATIENT
  Age: 63 Year
  Sex: Female

DRUGS (1)
  1. AVONEX [Suspect]
     Indication: MULTIPLE SCLEROSIS
     Route: 030
     Dates: start: 20110212

REACTIONS (5)
  - DIZZINESS [None]
  - HYPERHIDROSIS [None]
  - VOMITING [None]
  - ASTHENIA [None]
  - HEART RATE INCREASED [None]
